FAERS Safety Report 13563355 (Version 5)
Quarter: 2019Q3

REPORT INFORMATION
  Report Type: Report from Study
  Country: US (occurrence: US)
  Receive Date: 20170519
  Receipt Date: 20190820
  Transmission Date: 20191004
  Serious: Yes (Death, Hospitalization)
  Sender: FDA-Public Use
  Company Number: US-ROCHE-1892105

PATIENT
  Age: 59 Year
  Sex: Male
  Weight: 88.5 kg

DRUGS (25)
  1. LASIX [Concomitant]
     Active Substance: FUROSEMIDE
     Indication: WHEEZING
     Route: 042
     Dates: start: 20170208, end: 20170209
  2. LASIX [Concomitant]
     Active Substance: FUROSEMIDE
     Indication: RALES
  3. PHENYLEPHRINE [Concomitant]
     Active Substance: PHENYLEPHRINE HYDROCHLORIDE
     Indication: SEDATION
     Route: 042
     Dates: start: 20170208, end: 20170209
  4. PROPOFOL. [Concomitant]
     Active Substance: PROPOFOL
     Indication: SEDATION
     Route: 042
     Dates: start: 20170208, end: 20170209
  5. VASOPRESSIN. [Concomitant]
     Active Substance: VASOPRESSIN
     Indication: HYPOTENSION
     Route: 042
     Dates: start: 20170209, end: 20170209
  6. OXYCODONE [Concomitant]
     Active Substance: OXYCODONE
     Indication: PAIN
     Route: 048
  7. ONDANSETRON [Concomitant]
     Active Substance: ONDANSETRON
     Indication: NAUSEA
     Route: 048
  8. TYLENOL [Concomitant]
     Active Substance: ACETAMINOPHEN
     Indication: PYREXIA
     Route: 048
     Dates: start: 20170207, end: 20170209
  9. ENOXAPARIN [Concomitant]
     Active Substance: ENOXAPARIN
     Indication: ANTICOAGULANT THERAPY
     Dosage: BLOOD THINNER
     Route: 058
  10. DUONEB [Concomitant]
     Active Substance: ALBUTEROL SULFATE\IPRATROPIUM BROMIDE
     Indication: RESPIRATORY DISTRESS
     Route: 045
     Dates: start: 20170208, end: 20170209
  11. HEPARIN [Concomitant]
     Active Substance: HEPARIN SODIUM
     Indication: DEEP VEIN THROMBOSIS
     Route: 042
     Dates: start: 20170208, end: 20170209
  12. NOREPINEPHRINE. [Concomitant]
     Active Substance: NOREPINEPHRINE
     Indication: RESPIRATORY DISTRESS
     Route: 042
     Dates: start: 20170209, end: 20170209
  13. SENNA PLUS [DOCUSATE SODIUM;SENNOSIDE A+B] [Concomitant]
     Indication: CONSTIPATION
     Route: 048
  14. FAMOTIDINE. [Concomitant]
     Active Substance: FAMOTIDINE
     Indication: GASTROOESOPHAGEAL REFLUX DISEASE
  15. ZOFRAN [Concomitant]
     Active Substance: ONDANSETRON HYDROCHLORIDE
     Indication: NAUSEA
     Route: 042
     Dates: start: 20170207, end: 20170209
  16. EPINEPHRINE. [Concomitant]
     Active Substance: EPINEPHRINE
     Indication: RESPIRATORY DISTRESS
     Route: 042
     Dates: start: 20170209, end: 20170209
  17. ATEZOLIZUMAB. [Suspect]
     Active Substance: ATEZOLIZUMAB
     Indication: TRANSITIONAL CELL CARCINOMA
     Dosage: ON 26/JAN/2017 AT 12:11, HE RECEIVED THE MOST RECENT DOSE OF ATEZOLIZUMAB PRIOR TO ONSET OF RESPIRAT
     Route: 042
     Dates: start: 20170126
  18. PROCHLORPERAZINE. [Concomitant]
     Active Substance: PROCHLORPERAZINE
     Indication: NAUSEA
     Route: 048
  19. CEFTRIAXONE. [Concomitant]
     Active Substance: CEFTRIAXONE
     Indication: INFECTION
     Route: 042
     Dates: start: 20170207, end: 20170209
  20. OXYCODONE [Concomitant]
     Active Substance: OXYCODONE
     Route: 048
     Dates: start: 20170207, end: 20170209
  21. FAMOTIDINE. [Concomitant]
     Active Substance: FAMOTIDINE
     Indication: NAUSEA
     Route: 048
     Dates: start: 20170207, end: 20170209
  22. LOVENOX [Concomitant]
     Active Substance: ENOXAPARIN SODIUM
     Indication: DEEP VEIN THROMBOSIS
     Route: 058
     Dates: start: 20170207, end: 20170208
  23. MORPHINE SULFATE. [Concomitant]
     Active Substance: MORPHINE SULFATE
     Indication: PAIN
     Route: 042
     Dates: start: 20170207, end: 20170209
  24. LEVOFLOXACIN. [Concomitant]
     Active Substance: LEVOFLOXACIN
     Dosage: ANTIBIOTIC
     Route: 048
  25. AMIODARONE [Concomitant]
     Active Substance: AMIODARONE
     Indication: TACHYCARDIA
     Route: 042
     Dates: start: 20170208, end: 20170209

REACTIONS (1)
  - Acute respiratory distress syndrome [Fatal]

NARRATIVE: CASE EVENT DATE: 20170206
